FAERS Safety Report 9636240 (Version 2)
Quarter: 2013Q4

REPORT INFORMATION
  Report Type: Spontaneous
  Country: AU (occurrence: AU)
  Receive Date: 20131021
  Receipt Date: 20131025
  Transmission Date: 20140711
  Serious: Yes (Death)
  Sender: FDA-Public Use
  Company Number: AU-009507513-1310AUS007777

PATIENT
  Age: 20 Year
  Sex: Female

DRUGS (4)
  1. CASPOFUNGIN ACETATE [Suspect]
     Indication: FUNGAL ENDOCARDITIS
     Dosage: UNK
  2. AMBISOME [Concomitant]
  3. ITRACONAZOLE [Concomitant]
     Indication: PROPHYLAXIS AGAINST TRANSPLANT REJECTION
     Dosage: UNK
  4. VFEND [Concomitant]
     Indication: ASPERGILLUS INFECTION
     Dosage: 4 MG/KG, BID
     Route: 042

REACTIONS (1)
  - Fungal endocarditis [Fatal]
